FAERS Safety Report 4516667-3 (Version None)
Quarter: 2004Q4

REPORT INFORMATION
  Report Type: 
  Country: None (occurrence: None)
  Receive Date: 20041130
  Receipt Date: 20041116
  Transmission Date: 20050328
  Serious: Yes (Hospitalization, Other)
  Sender: FDA-Public Use
  Company Number: GBS041115957

PATIENT
  Age: 39 Year
  Sex: Male

DRUGS (3)
  1. OLANZAPINE [Suspect]
     Indication: SCHIZOPHRENIA
     Dosage: 20 MG
     Dates: start: 20000101
  2. PROCYCLIDINE HYDROCHLORIDE 2MG TAB [Concomitant]
     Indication: SCHIZOPHRENIA
     Dosage: 20 MG
     Dates: start: 20000101
  3. PROCYCLIDINE HYDROCHLORIDE 2MG TAB [Concomitant]

REACTIONS (5)
  - ALANINE AMINOTRANSFERASE INCREASED [None]
  - GRAND MAL CONVULSION [None]
  - HEPATIC STEATOSIS [None]
  - IMPAIRED WORK ABILITY [None]
  - JOINT DISLOCATION [None]
